FAERS Safety Report 8436164-2 (Version None)
Quarter: 2012Q2

REPORT INFORMATION
  Report Type: 
  Country: None (occurrence: None)
  Receive Date: 20120614
  Receipt Date: 20120611
  Transmission Date: 20120825
  Serious: Yes (Other)
  Sender: FDA-Public Use
  Company Number: US-PFIZER INC-2012103612

PATIENT
  Sex: Female

DRUGS (2)
  1. PRISTIQ [Suspect]
     Indication: DEPRESSION
     Dosage: 100 MG, ONE, 1X/DAY
     Route: 048
     Dates: start: 20110101
  2. RELPAX [Suspect]
     Dosage: UNK

REACTIONS (9)
  - ACCIDENT AT WORK [None]
  - DEPRESSION [None]
  - STRESS [None]
  - INSOMNIA [None]
  - SPINAL COLUMN INJURY [None]
  - DIZZINESS [None]
  - MIGRAINE [None]
  - BACK INJURY [None]
  - PAIN [None]
